FAERS Safety Report 19114833 (Version 12)
Quarter: 2025Q4

REPORT INFORMATION
  Report Type: Report from Study
  Country: IL (occurrence: IL)
  Receive Date: 20210409
  Receipt Date: 20251216
  Transmission Date: 20260117
  Serious: Yes (Death, Hospitalization)
  Sender: ABBVIE
  Company Number: IL-ABBVIE-21K-082-3848009-00

PATIENT
  Age: 45 Year
  Sex: Male
  Weight: 89 kg

DRUGS (23)
  1. VENCLEXTA [Suspect]
     Active Substance: VENETOCLAX
     Indication: Acute myeloid leukaemia
     Dosage: 100 MILLIGRAM
     Route: 048
     Dates: start: 20200527, end: 20200527
  2. VENCLEXTA [Suspect]
     Active Substance: VENETOCLAX
     Indication: Acute myeloid leukaemia
     Dosage: 200 MILLIGRAM
     Route: 048
     Dates: start: 20200528, end: 20200530
  3. VENCLEXTA [Suspect]
     Active Substance: VENETOCLAX
     Indication: Acute myeloid leukaemia
     Dosage: 300 MILLIGRAM
     Route: 048
     Dates: start: 20200531, end: 20200601
  4. VENCLEXTA [Suspect]
     Active Substance: VENETOCLAX
     Indication: Acute myeloid leukaemia
     Dosage: 400 MILLIGRAM
     Route: 048
     Dates: start: 20200602, end: 20201206
  5. VENCLEXTA [Suspect]
     Active Substance: VENETOCLAX
     Indication: Acute myeloid leukaemia
     Dosage: END OF CYCLE 6
     Route: 048
     Dates: end: 20201123
  6. AZACITIDINE [Suspect]
     Active Substance: AZACITIDINE
     Indication: Acute myeloid leukaemia
     Dosage: 150 MILLIGRAM?FREQUENCY TEXT: QD?DURATION TEXT: CYCLE 1
     Route: 042
     Dates: start: 20201122, end: 20201123
  7. AZACITIDINE [Suspect]
     Active Substance: AZACITIDINE
     Indication: Acute myeloid leukaemia
     Dosage: 150 MILLIGRAM?CYCLE 2
     Route: 042
     Dates: start: 20200621, end: 20200625
  8. AZACITIDINE [Suspect]
     Active Substance: AZACITIDINE
     Indication: Acute myeloid leukaemia
     Dosage: 150 MILLIGRAM CYCLE 1
     Route: 042
     Dates: start: 20200527, end: 20200602
  9. AZACITIDINE [Suspect]
     Active Substance: AZACITIDINE
     Indication: Acute myeloid leukaemia
     Dosage: 150 MILLIGRAM?CYCLE 4
     Route: 042
     Dates: start: 20200726, end: 20200727
  10. AZACITIDINE [Suspect]
     Active Substance: AZACITIDINE
     Indication: Acute myeloid leukaemia
     Dosage: 150 MILLIGRAM?CYCLE 3
     Route: 042
     Dates: start: 20200719, end: 20200723
  11. AZACITIDINE [Suspect]
     Active Substance: AZACITIDINE
     Indication: Acute myeloid leukaemia
     Dosage: 150 MILLIGRAM
     Route: 042
     Dates: start: 20201115, end: 20201119
  12. AZACITIDINE [Suspect]
     Active Substance: AZACITIDINE
     Indication: Acute myeloid leukaemia
     Dosage: 150 MILLIGRAM?CYCLE 5
     Route: 042
     Dates: start: 20201011, end: 20201015
  13. AZACITIDINE [Suspect]
     Active Substance: AZACITIDINE
     Indication: Acute myeloid leukaemia
     Dosage: 150 MILLIGRAM?CYCLE 5
     Route: 042
     Dates: start: 20200906, end: 20200907
  14. AZACITIDINE [Suspect]
     Active Substance: AZACITIDINE
     Indication: Acute myeloid leukaemia
     Dosage: 150 MILLIGRAM?CYCLE 4
     Route: 042
     Dates: start: 20200830, end: 20200903
  15. AZACITIDINE [Suspect]
     Active Substance: AZACITIDINE
     Indication: Acute myeloid leukaemia
     Dosage: 150 MILLIGRAM?CYCLE 3
     Route: 042
     Dates: start: 20200628, end: 20200629
  16. AZACITIDINE [Suspect]
     Active Substance: AZACITIDINE
     Indication: Acute myeloid leukaemia
     Dosage: 150 MILLIGRAM?CYCLE 9
     Route: 042
     Dates: start: 20201018, end: 20201019
  17. LEVEMIR [Concomitant]
     Active Substance: INSULIN DETEMIR
     Indication: Diabetes mellitus
  18. BISOPROLOL FUMARATE [Concomitant]
     Active Substance: BISOPROLOL FUMARATE
     Indication: Cardiac failure
     Dates: start: 20190303
  19. RAMIPRIL [Concomitant]
     Active Substance: RAMIPRIL
     Indication: Hypertension
     Dates: start: 20190303
  20. LANTUS [Concomitant]
     Active Substance: INSULIN GLARGINE
     Indication: Blood insulin
     Dates: start: 20190303
  21. HYDREA [Concomitant]
     Active Substance: HYDROXYUREA
     Indication: Acute myeloid leukaemia
     Dates: start: 20190303
  22. ALDACTONE [Concomitant]
     Active Substance: SPIRONOLACTONE
     Indication: Cardiac failure
     Dates: start: 20190303
  23. ALLOPURINOL [Concomitant]
     Active Substance: ALLOPURINOL
     Indication: Tumour lysis syndrome
     Dates: start: 20190303

REACTIONS (5)
  - Disease recurrence [Fatal]
  - Acute myeloid leukaemia recurrent [Fatal]
  - Neutropenia [Unknown]
  - Bone pain [Recovered/Resolved]
  - Pyrexia [Recovered/Resolved]

NARRATIVE: CASE EVENT DATE: 20200916
